FAERS Safety Report 17255426 (Version 1)
Quarter: 2020Q1

REPORT INFORMATION
  Report Type: Spontaneous
  Country: US (occurrence: US)
  Receive Date: 20200110
  Receipt Date: 20200110
  Transmission Date: 20200409
  Serious: Yes (Other)
  Sender: FDA-Public Use
  Company Number: US-TEVA-2020-US-1166271

PATIENT
  Sex: Female

DRUGS (2)
  1. PROGLYCEM [Suspect]
     Active Substance: DIAZOXIDE
     Indication: NESIDIOBLASTOSIS
     Route: 048
  2. PROGLYCEM [Suspect]
     Active Substance: DIAZOXIDE
     Indication: HYPOGLYCAEMIA

REACTIONS (1)
  - Drug ineffective [Unknown]
